FAERS Safety Report 6474586-X (Version None)
Quarter: 2009Q4

REPORT INFORMATION
  Report Type: 
  Country: None (occurrence: None)
  Receive Date: 20091204
  Receipt Date: 20090127
  Transmission Date: 20100525
  Serious: Yes (Hospitalization, Other)
  Sender: FDA-Public Use
  Company Number: US-ELI_LILLY_AND_COMPANY-US200901004760

PATIENT
  Sex: Male

DRUGS (8)
  1. HUMALOG [Suspect]
     Dosage: UNK, UNK
  2. HUMALOG [Suspect]
  3. GLYCERYL TRINITRATE [Concomitant]
  4. LEVEMIR [Concomitant]
  5. ATORVASTATIN CALCIUM [Concomitant]
  6. METOPROLOL SUCCINATE [Concomitant]
  7. ENALAPRIL [Concomitant]
  8. VITAMINS [Concomitant]
     Indication: AMNESIA

REACTIONS (7)
  - BLOOD GLUCOSE INCREASED [None]
  - CAPILLARY DISORDER [None]
  - CARDIAC DISORDER [None]
  - CORONARY ARTERY BYPASS [None]
  - CORONARY ARTERY OCCLUSION [None]
  - CORONARY ARTERY REOCCLUSION [None]
  - MYOCARDIAL INFARCTION [None]
